FAERS Safety Report 5928960-8 (Version None)
Quarter: 2008Q4

REPORT INFORMATION
  Report Type: 
  Country: None (occurrence: None)
  Receive Date: 20081024
  Receipt Date: 20081013
  Transmission Date: 20090506
  Serious: Yes (Death, Other)
  Sender: FDA-Public Use
  Company Number: NL-AVENTIS-200814930EU

PATIENT
  Age: 91 Year
  Sex: Male

DRUGS (8)
  1. SPIRONOLACTONE [Suspect]
     Dates: start: 20060801
  2. FUROSEMIDE [Suspect]
     Dates: start: 20010101
  3. FUROSEMIDE [Suspect]
  4. FUROSEMIDE [Suspect]
     Dates: start: 20070901
  5. ENALAPRIL MALEATE [Suspect]
     Dates: start: 20010101
  6. DIGOXIN [Suspect]
     Dates: start: 20060801
  7. DIGOXIN [Suspect]
     Indication: ATRIAL FIBRILLATION
     Dates: start: 20060801
  8. ACENOCOUMAROL [Concomitant]
     Indication: ATRIAL FIBRILLATION
     Dates: start: 20060801

REACTIONS (2)
  - HYPERKALAEMIA [None]
  - RENAL FAILURE [None]
